FAERS Safety Report 10081764 (Version 1)
Quarter: 2014Q2

REPORT INFORMATION
  Report Type: Spontaneous
  Country: FR (occurrence: None)
  Receive Date: 20140414
  Receipt Date: 20140414
  Transmission Date: 20141212
  Serious: Yes (Other)
  Sender: FDA-Public Use
  Company Number: FR-ALKEM-000554

PATIENT
  Sex: Female

DRUGS (5)
  1. MYCOPHENOLATE MOFETIL [Suspect]
     Indication: TRANSPLANT
     Dates: start: 2010
  2. PREDNISOLONE [Suspect]
     Indication: TRANSPLANT
     Dates: start: 201011
  3. SIROLIMUS [Suspect]
     Indication: TRANSPLANT
     Dates: start: 201011
  4. CAMPATH-1H [Suspect]
     Indication: TRANSPLANT
  5. TACROLIMUS [Suspect]
     Indication: TRANSPLANT
     Dates: start: 201011

REACTIONS (3)
  - Epstein-Barr virus infection [None]
  - Deep vein thrombosis [None]
  - Thrombophlebitis superficial [None]
